FAERS Safety Report 7016274-7 (Version None)
Quarter: 2010Q3

REPORT INFORMATION
  Report Type: 
  Country: None (occurrence: None)
  Receive Date: 20100909
  Receipt Date: 20100504
  Transmission Date: 20110219
  Serious: No
  Sender: FDA-Public Use
  Company Number: 2010SP025270

PATIENT
  Sex: Female

DRUGS (3)
  1. SAPHRIS [Suspect]
     Indication: PRODUCT USED FOR UNKNOWN INDICATION
     Dosage: 10 MG;BID;SL
     Route: 060
  2. CLONIDINE (CON.) [Concomitant]
  3. DEPAKOTE ER (CON.) [Concomitant]

REACTIONS (2)
  - TONGUE BLISTERING [None]
  - TONGUE DISORDER [None]
